FAERS Safety Report 12687382 (Version 1)
Quarter: 2016Q3

REPORT INFORMATION
  Report Type: Report from Study
  Country: BR (occurrence: BR)
  Receive Date: 20160825
  Receipt Date: 20160825
  Transmission Date: 20161109
  Serious: Yes (Death)
  Sender: FDA-Public Use
  Company Number: PHHY2016BR038710

PATIENT
  Age: 87 Year
  Sex: Male

DRUGS (3)
  1. EXELON PATCH [Suspect]
     Active Substance: RIVASTIGMINE
     Indication: DAYDREAMING
     Dosage: A HIGHER DOSE
     Route: 062
  2. EXELON PATCH [Suspect]
     Active Substance: RIVASTIGMINE
     Indication: MEMORY IMPAIRMENT
  3. EXELON PATCH [Suspect]
     Active Substance: RIVASTIGMINE
     Indication: METABOLIC DISORDER
     Dosage: 4.6 MG, (PATCH 5 CM2), QD
     Route: 062

REACTIONS (3)
  - Product use issue [Unknown]
  - Incorrect drug administration duration [Unknown]
  - Death [Fatal]

NARRATIVE: CASE EVENT DATE: 20160317
